FAERS Safety Report 7291383-6 (Version None)
Quarter: 2011Q1

REPORT INFORMATION
  Report Type: 
  Country: None (occurrence: None)
  Receive Date: 20110214
  Receipt Date: 20110202
  Transmission Date: 20110831
  Serious: Yes (Hospitalization)
  Sender: FDA-Public Use
  Company Number: B0698025A

PATIENT
  Sex: Female

DRUGS (5)
  1. SOTALOL HCL [Concomitant]
     Route: 065
     Dates: start: 20050923
  2. HYTACAND [Concomitant]
     Route: 065
     Dates: start: 20090926
  3. GALVUS [Concomitant]
     Dosage: 50MG TWICE PER DAY
     Dates: start: 20100628
  4. AVANDAMET [Suspect]
     Route: 048
     Dates: start: 20060424, end: 20101007
  5. INEGY [Concomitant]
     Route: 065
     Dates: start: 20080707

REACTIONS (4)
  - CORONARY OSTIAL STENOSIS [None]
  - DYSPNOEA EXERTIONAL [None]
  - CHEST DISCOMFORT [None]
  - ASPHYXIA [None]
